FAERS Safety Report 4453560-9 (Version None)
Quarter: 2004Q3

REPORT INFORMATION
  Report Type: 
  Country: None (occurrence: None)
  Receive Date: 20040920
  Receipt Date: 20040909
  Transmission Date: 20050211
  Serious: Yes (Hospitalization)
  Sender: FDA-Public Use
  Company Number: JP-BRISTOL-MYERS SQUIBB COMPANY-12701694

PATIENT
  Age: 56 Year
  Sex: Female

DRUGS (3)
  1. ENDOXAN [Suspect]
     Indication: BREAST CANCER
     Dates: start: 20030501
  2. EPIRUBICIN [Suspect]
     Indication: BREAST CANCER
     Dates: start: 20030501
  3. FLUOROURACIL [Suspect]
     Indication: BREAST CANCER
     Dates: start: 20030501

REACTIONS (1)
  - BILIARY CIRRHOSIS PRIMARY [None]
